FAERS Safety Report 22015573 (Version 3)
Quarter: 2023Q1

REPORT INFORMATION
  Report Type: Report from Study
  Country: GR (occurrence: None)
  Receive Date: 20230221
  Receipt Date: 20230321
  Transmission Date: 20230418
  Serious: Yes (Death, Hospitalization)
  Sender: FDA-Public Use
  Company Number: GR-Merck Healthcare KGaA-9385003

PATIENT
  Age: 53 Year
  Sex: Male

DRUGS (2)
  1. REBIF [Suspect]
     Active Substance: INTERFERON BETA-1A
     Indication: Multiple sclerosis
     Route: 058
     Dates: start: 20160210
  2. ACETAMINOPHEN [Concomitant]
     Active Substance: ACETAMINOPHEN
     Indication: Product used for unknown indication

REACTIONS (4)
  - Cerebrovascular accident [Fatal]
  - Coma [Unknown]
  - Hypertension [Not Recovered/Not Resolved]
  - Hypertriglyceridaemia [Unknown]

NARRATIVE: CASE EVENT DATE: 20230203
